FAERS Safety Report 8544810-8 (Version None)
Quarter: 2012Q2

REPORT INFORMATION
  Report Type: 
  Country: None (occurrence: None)
  Receive Date: 20120416
  Receipt Date: 20100525
  Transmission Date: 20120825
  Serious: Yes (Other)
  Sender: FDA-Public Use
  Company Number: PHHY2010US22171

PATIENT
  Age: 90 Year
  Sex: Female

DRUGS (2)
  1. ATENOLOL [Concomitant]
  2. DIOVAN [Suspect]
     Dosage: 80 MG
     Dates: start: 20100405

REACTIONS (5)
  - FATIGUE [None]
  - ANGIOEDEMA [None]
  - CHEILITIS [None]
  - LIP SWELLING [None]
  - DIZZINESS [None]
